FAERS Safety Report 11232030 (Version 1)
Quarter: 2015Q3

REPORT INFORMATION
  Report Type: Spontaneous
  Country: US (occurrence: US)
  Receive Date: 20150701
  Receipt Date: 20150701
  Transmission Date: 20151125
  Serious: No
  Sender: FDA-Public Use
  Company Number: US-TEVA-573849USA

PATIENT

DRUGS (2)
  1. NUVIGIL [Suspect]
     Active Substance: ARMODAFINIL
     Indication: DEPRESSION
  2. NUVIGIL [Suspect]
     Active Substance: ARMODAFINIL
     Indication: SCHIZOPHRENIA
     Route: 048

REACTIONS (1)
  - Product use issue [Unknown]
